FAERS Safety Report 6732793-2 (Version None)
Quarter: 2010Q2

REPORT INFORMATION
  Report Type: 
  Country: None (occurrence: None)
  Receive Date: 20100519
  Receipt Date: 20100506
  Transmission Date: 20101027
  Serious: Yes (Hospitalization, Other)
  Sender: FDA-Public Use
  Company Number: GB-ELI_LILLY_AND_COMPANY-GB200908005854

PATIENT
  Age: 40 Year
  Sex: Male

DRUGS (6)
  1. CYMBALTA [Suspect]
     Indication: BIPOLAR DISORDER
     Dosage: 60 MG, UNKNOWN
     Route: 065
     Dates: start: 20080401, end: 20081001
  2. ABILIFY [Concomitant]
     Indication: SCHIZOAFFECTIVE DISORDER
     Dosage: 15 MG, DAILY (1/D)
     Route: 048
     Dates: start: 20081001
  3. MIRTAZAPINE [Concomitant]
     Indication: AFFECTIVE DISORDER
     Dosage: UNK, UNKNOWN
     Route: 065
     Dates: end: 20080401
  4. QUETIAPINE [Concomitant]
     Indication: AFFECTIVE DISORDER
     Dosage: UNK, UNKNOWN
     Route: 065
     Dates: end: 20080401
  5. SODIUM VALPROATE [Concomitant]
     Indication: AFFECTIVE DISORDER
     Dosage: UNK, UNKNOWN
     Route: 065
     Dates: end: 20080401
  6. LITHIUM [Concomitant]
     Dosage: 600 MG, DAILY (1/D)
     Route: 048

REACTIONS (4)
  - GAMMA-GLUTAMYLTRANSFERASE INCREASED [None]
  - LIVER FUNCTION TEST ABNORMAL [None]
  - OFF LABEL USE [None]
  - SCHIZOAFFECTIVE DISORDER [None]
